FAERS Safety Report 19360809 (Version 1)
Quarter: 2021Q2

REPORT INFORMATION
  Report Type: Report from Study
  Country: None (occurrence: US)
  Receive Date: 20210602
  Receipt Date: 20210602
  Transmission Date: 20210717
  Serious: No
  Sender: FDA-Public Use
  Company Number: US-MDD US OPERATIONS-MDD202103-000471

PATIENT
  Sex: Male

DRUGS (1)
  1. APOKYN [Suspect]
     Active Substance: APOMORPHINE HYDROCHLORIDE
     Indication: PARKINSON^S DISEASE
     Dosage: NOT PROVIDED
     Route: 058
     Dates: start: 20210303, end: 202103

REACTIONS (3)
  - Loss of consciousness [Unknown]
  - Somnolence [Unknown]
  - Therapy non-responder [Unknown]

NARRATIVE: CASE EVENT DATE: 202103
